FAERS Safety Report 18154110 (Version 1)
Quarter: 2020Q3

REPORT INFORMATION
  Report Type: Spontaneous
  Country: JP (occurrence: JP)
  Receive Date: 20200816
  Receipt Date: 20200816
  Transmission Date: 20201103
  Serious: Yes (Other)
  Sender: FDA-Public Use
  Company Number: JP-PFIZER INC-2020310750

PATIENT
  Sex: Female

DRUGS (2)
  1. PREMARIN [Suspect]
     Active Substance: ESTROGENS, CONJUGATED
     Dosage: UNK
     Route: 048
  2. DUPHASTON [Suspect]
     Active Substance: DYDROGESTERONE
     Route: 048

REACTIONS (4)
  - Haemorrhage subcutaneous [Unknown]
  - Oedema peripheral [Unknown]
  - Cholelithiasis [Unknown]
  - Cataract [Unknown]
